FAERS Safety Report 7111390-3 (Version None)
Quarter: 2010Q4

REPORT INFORMATION
  Report Type: 
  Country: None (occurrence: None)
  Receive Date: 20101118
  Receipt Date: 20100104
  Transmission Date: 20110411
  Serious: No
  Sender: FDA-Public Use
  Company Number: US-TEVA-218790USA

PATIENT
  Age: 41 Year
  Sex: Male

DRUGS (3)
  1. ALBUTEROL SULFATE AUTOHALER [Suspect]
     Indication: ASTHMA
     Route: 055
  2. LEVOSALBUTAMOL [Suspect]
     Indication: ASTHMA
     Route: 055
     Dates: start: 20090101, end: 20090101
  3. FLUTICASONE PROPIONATE [Suspect]

REACTIONS (1)
  - SWOLLEN TONGUE [None]
